FAERS Safety Report 12998420 (Version 2)
Quarter: 2016Q4

REPORT INFORMATION
  Report Type: Spontaneous
  Country: FR (occurrence: FR)
  Receive Date: 20161205
  Receipt Date: 20161222
  Transmission Date: 20170207
  Serious: Yes (Death, Congenital Anomaly)
  Sender: FDA-Public Use
  Company Number: FR-GUERBET LLC-1060406

PATIENT

DRUGS (4)
  1. DOTAREM [Suspect]
     Active Substance: GADOTERATE MEGLUMINE
     Indication: FOETAL EXPOSURE TIMING UNSPECIFIED
     Route: 064
  2. DESMOPRESSIN ACETATE. [Suspect]
     Active Substance: DESMOPRESSIN ACETATE
     Route: 064
  3. DOSTINEX [Suspect]
     Active Substance: CABERGOLINE
     Route: 064
  4. ISOTRETINOINE [Suspect]
     Active Substance: ISOTRETINOIN
     Route: 064

REACTIONS (3)
  - Abortion induced complete [Fatal]
  - Foetal exposure during pregnancy [Fatal]
  - Congenital cerebellar agenesis [Fatal]

NARRATIVE: CASE EVENT DATE: 201610
